FAERS Safety Report 4463252-8 (Version None)
Quarter: 2004Q3

REPORT INFORMATION
  Report Type: 
  Country: None (occurrence: None)
  Receive Date: 20040930
  Receipt Date: 20040920
  Transmission Date: 20050211
  Serious: Yes (Hospitalization)
  Sender: FDA-Public Use
  Company Number: FR-GLAXOSMITHKLINE-B0345675A

PATIENT
  Age: 61 Year
  Sex: Male
  Weight: 60 kg

DRUGS (4)
  1. ZOPHREN [Suspect]
     Dosage: 8MG PER DAY
     Route: 042
     Dates: start: 20030924, end: 20030924
  2. LEDERFOLINE [Suspect]
     Dosage: 325MG PER DAY
     Route: 042
     Dates: start: 20030924, end: 20030925
  3. ELOXATIN [Suspect]
     Dosage: 160MG PER DAY
     Route: 042
     Dates: start: 20030924, end: 20030924
  4. FLUOROURACIL [Suspect]
     Dosage: 650MG PER DAY
     Route: 042
     Dates: start: 20030924, end: 20030925

REACTIONS (4)
  - MALAISE [None]
  - PRURITUS [None]
  - RASH ERYTHEMATOUS [None]
  - TREMOR [None]
